FAERS Safety Report 9337185 (Version 1)
Quarter: 2013Q2

REPORT INFORMATION
  Report Type: Spontaneous
  Country: ZA (occurrence: ZA)
  Receive Date: 20130607
  Receipt Date: 20130607
  Transmission Date: 20140414
  Serious: Yes (Hospitalization, Other)
  Sender: FDA-Public Use
  Company Number: ZA-009507513-1306ZAF000192

PATIENT
  Sex: Female

DRUGS (1)
  1. ESMERON [Suspect]
     Dosage: 0.5 MG/KG, ONCE

REACTIONS (4)
  - Neuromuscular block prolonged [Unknown]
  - Abdominal infection [Unknown]
  - Endotracheal intubation [Unknown]
  - Purulence [Unknown]
